FAERS Safety Report 13790452 (Version 1)
Quarter: 2017Q3

REPORT INFORMATION
  Report Type: Spontaneous
  Country: FR (occurrence: FR)
  Receive Date: 20170725
  Receipt Date: 20170725
  Transmission Date: 20171127
  Serious: Yes (Other)
  Sender: FDA-Public Use
  Company Number: FR-ALVOGEN-2017-ALVOGEN-092839

PATIENT
  Age: 77 Year
  Sex: Female

DRUGS (3)
  1. FLECAINIDE ACETATE. [Suspect]
     Active Substance: FLECAINIDE ACETATE
     Indication: HYPERTENSION
     Route: 048
     Dates: start: 201605
  2. ZESTORETIC [Suspect]
     Active Substance: HYDROCHLOROTHIAZIDE\LISINOPRIL
     Indication: HYPERTENSION
     Dosage: 20 MG/12.5 MG (30 MG/DAY)
     Dates: start: 20151117, end: 20160511
  3. ZESTRIL [Suspect]
     Active Substance: LISINOPRIL
     Indication: HYPERTENSION
     Route: 048
     Dates: start: 1994, end: 2015

REACTIONS (5)
  - Abdominal pain [Recovered/Resolved]
  - Metastases to liver [None]
  - Pancreatic carcinoma [Not Recovered/Not Resolved]
  - Metastases to gastrointestinal tract [None]
  - Metastases to lung [None]

NARRATIVE: CASE EVENT DATE: 20151119
